FAERS Safety Report 6177041-X (Version None)
Quarter: 2009Q2

REPORT INFORMATION
  Report Type: 
  Country: None (occurrence: None)
  Receive Date: 20090501
  Receipt Date: 20090423
  Transmission Date: 20091009
  Serious: Yes (Other)
  Sender: FDA-Public Use
  Company Number: JP-GENENTECH-281904

PATIENT
  Age: 56 Year
  Sex: Female

DRUGS (1)
  1. AVASTIN [Suspect]
     Indication: RETINAL NEOVASCULARISATION
     Dosage: 1.25 MG, UNK
     Route: 031

REACTIONS (1)
  - IRIDOCYCLITIS [None]
